FAERS Safety Report 7679418-X (Version None)
Quarter: 2011Q3

REPORT INFORMATION
  Report Type: 
  Country: None (occurrence: None)
  Receive Date: 20110805
  Receipt Date: 20110801
  Transmission Date: 20111222
  Serious: Yes (Hospitalization)
  Sender: FDA-Public Use
  Company Number: 2011SP036071

PATIENT
  Age: 60 Year
  Sex: Female

DRUGS (14)
  1. SAM-E [Concomitant]
  2. LASIX [Concomitant]
  3. AMBIEN [Concomitant]
  4. ASPIRIN [Concomitant]
  5. SAPHRIS [Suspect]
     Indication: DEPRESSION
     Dosage: 5 MG;HS
     Dates: start: 20110713
  6. WELLBUTRIN XL [Concomitant]
  7. OLEPTRO [Concomitant]
  8. ATENOLOL [Concomitant]
  9. SPIRONOLACTONE [Concomitant]
  10. TRAZODONE HCL [Concomitant]
  11. XANAX [Concomitant]
  12. VALIUM [Concomitant]
  13. ACIPHEX [Concomitant]
  14. LIPITOR [Concomitant]

REACTIONS (1)
  - AGITATION [None]
